FAERS Safety Report 14265608 (Version 1)
Quarter: 2017Q4

REPORT INFORMATION
  Report Type: Report from Study
  Country: JP (occurrence: JP)
  Receive Date: 20171208
  Receipt Date: 20171208
  Transmission Date: 20180321
  Serious: No
  Sender: FDA-Public Use
  Company Number: JP-BIOVERATIV-2017BV000377

PATIENT
  Sex: Male
  Weight: 74.3 kg

DRUGS (2)
  1. ALPROLIX [Suspect]
     Active Substance: EFTRENONACOG ALFA
     Indication: FACTOR IX DEFICIENCY
     Dosage: ROUTINE TREATMENT
     Route: 042
  2. MICOMBI AP [Concomitant]
     Indication: HYPERTENSION
     Route: 048

REACTIONS (1)
  - Haemorrhage [Recovered/Resolved]

NARRATIVE: CASE EVENT DATE: 20170505
